FAERS Safety Report 5134085-4 (Version None)
Quarter: 2006Q4

REPORT INFORMATION
  Report Type: 
  Country: None (occurrence: None)
  Receive Date: 20061024
  Receipt Date: 20060927
  Transmission Date: 20070319
  Serious: Yes (Other)
  Sender: FDA-Public Use
  Company Number: JP-BAYER-200611085BYL

PATIENT
  Age: 69 Year
  Sex: Male

DRUGS (2)
  1. ADALAT [Suspect]
     Indication: HYPERTENSION
     Dosage: TOTAL DAILY DOSE: 30 MG  UNIT DOSE: 10 MG
     Route: 048
     Dates: start: 20030101, end: 20060705
  2. ZANTAC [Concomitant]
     Indication: GASTRIC ULCER
     Dosage: TOTAL DAILY DOSE: 150 MG  UNIT DOSE: 75 MG
     Route: 048

REACTIONS (1)
  - PEYRONIE'S DISEASE [None]
